FAERS Safety Report 5217171-X (Version None)
Quarter: 2007Q1

REPORT INFORMATION
  Report Type: 
  Country: None (occurrence: None)
  Receive Date: 20070123
  Receipt Date: 20070123
  Transmission Date: 20070707
  Serious: Yes (Other)
  Sender: FDA-Public Use
  Company Number: None

PATIENT
  Age: 59 Year
  Sex: Male
  Weight: 113.3993 kg

DRUGS (1)
  1. INDOMETHACIN [Suspect]
     Indication: GOUT
     Dosage: 1 CAPSULE 3 TIMES DAILY PO
     Route: 048
     Dates: start: 20061230, end: 20061231

REACTIONS (2)
  - COUGH [None]
  - URTICARIA [None]
